FAERS Safety Report 4284698-7 (Version None)
Quarter: 2004Q1

REPORT INFORMATION
  Report Type: 
  Country: None (occurrence: None)
  Receive Date: 20040130
  Receipt Date: 20040126
  Transmission Date: 20041129
  Serious: Yes (Hospitalization)
  Sender: FDA-Public Use
  Company Number: STA-AE-04-MTX-029

PATIENT
  Age: 50 Year
  Sex: Male

DRUGS (5)
  1. METHOTREXATE [Suspect]
     Indication: RHEUMATOID ARTHRITIS
  2. ENBREL [Suspect]
     Indication: RHEUMATOID ARTHRITIS
     Dosage: 25 MG
     Dates: start: 20001222, end: 20030301
  3. CALCICHEW (CALCIUM CARBONATE) [Concomitant]
  4. ALENDRONAGTE SODIUM (ALENDRONATE SODIUM) [Concomitant]
  5. MELOXICAM (MELOXICAM) [Concomitant]

REACTIONS (2)
  - ARTHRITIS BACTERIAL [None]
  - PARANASAL SINUS HYPERSECRETION [None]
